FAERS Safety Report 25097251 (Version 1)
Quarter: 2025Q1

REPORT INFORMATION
  Report Type: Spontaneous
  Country: CA (occurrence: CA)
  Receive Date: 20250320
  Receipt Date: 20250320
  Transmission Date: 20250408
  Serious: Yes (Death, Life-Threatening, Congenital Anomaly, Other)
  Sender: ABBVIE
  Company Number: CA-LUNDBECK-DKLU4011975

PATIENT
  Age: 3 Day

DRUGS (1)
  1. ESCITALOPRAM [Suspect]
     Active Substance: ESCITALOPRAM OXALATE
     Indication: Product used for unknown indication
     Route: 064

REACTIONS (2)
  - Necrotising enterocolitis neonatal [Fatal]
  - Pneumatosis intestinalis [Fatal]
